FAERS Safety Report 25816660 (Version 5)
Quarter: 2025Q4

REPORT INFORMATION
  Report Type: Report from Study
  Country: EU (occurrence: EU)
  Receive Date: 20250918
  Receipt Date: 20251126
  Transmission Date: 20260117
  Serious: Yes (Hospitalization)
  Sender: ABBVIE
  Company Number: EU-ABBVIE-6412910

PATIENT
  Age: 66 Year
  Sex: Male

DRUGS (16)
  1. CARBIDOPA\LEVODOPA [Suspect]
     Active Substance: CARBIDOPA\LEVODOPA
     Indication: Dementia with Lewy bodies
     Dosage: 20 MG + 5 MG, MOR:16CC;MAINT:5;EXTR:3.5CC
     Route: 050
     Dates: start: 2025, end: 20250731
  2. CARBIDOPA\LEVODOPA [Suspect]
     Active Substance: CARBIDOPA\LEVODOPA
     Dosage: 20 MG + 5 MG, MOR:16CC;MAINT:5;EXTR:3.5CC, GASTRIC PERFUSION
     Route: 050
     Dates: start: 20250731, end: 20250820
  3. CARBIDOPA\LEVODOPA [Suspect]
     Active Substance: CARBIDOPA\LEVODOPA
     Dosage: 20 MG + 5 MG, MOR:8CC;MAINT:2.8CC/H;EXTR:2CC
     Route: 050
     Dates: start: 20240110
  4. CARBIDOPA\LEVODOPA [Suspect]
     Active Substance: CARBIDOPA\LEVODOPA
     Dosage: 20 MG + 5 MG, MOR:10CC;MAINT:5;EXTR:4.5CC, GASTRIC PERFUSION
     Route: 050
     Dates: start: 20250820, end: 202510
  5. CARBIDOPA\LEVODOPA [Suspect]
     Active Substance: CARBIDOPA\LEVODOPA
     Dosage: MORNING 10 ML; CONTINUOUS 3.8 ML/H; EXTRA 5 ML. GASTRIC PERFUSION
     Route: 050
     Dates: start: 202510
  6. MINIRIN [Concomitant]
     Active Substance: DESMOPRESSIN ACETATE
     Indication: Hypertonic bladder
     Dosage: 1 TABLET AT BEDTIME, BEFORE DUODOPA
     Route: 048
  7. MIDODRINE HYDROCHLORIDE [Concomitant]
     Active Substance: MIDODRINE HYDROCHLORIDE
     Indication: Orthostatic hypotension
     Dosage: 4 TABLET, BEFORE DUODOPA
     Route: 048
  8. BENSERAZIDE HYDROCHLORIDE\LEVODOPA [Concomitant]
     Active Substance: BENSERAZIDE HYDROCHLORIDE\LEVODOPA
     Indication: Product used for unknown indication
     Dosage: 1 TABLET,AT BEDTIME
     Dates: start: 202508
  9. BETAHISTINE [Concomitant]
     Active Substance: BETAHISTINE
     Indication: Product used for unknown indication
     Dosage: START DATE TEXT: BEFORE DUODOPA
     Route: 048
  10. BENSERAZIDE HYDROCHLORIDE\LEVODOPA [Concomitant]
     Active Substance: BENSERAZIDE HYDROCHLORIDE\LEVODOPA
     Indication: Product used for unknown indication
     Dosage: 1 TABLET,AT BEDTIME
     Dates: start: 202508
  11. Melamil [Concomitant]
     Indication: Product used for unknown indication
     Dosage: 1 TABLET START DATE TEXT: AT BEDTIME, BEFORE DUODOPA
     Route: 048
  12. PANTOPRAZOLE [Concomitant]
     Active Substance: PANTOPRAZOLE
     Indication: Product used for unknown indication
     Dosage: 1 TABLET START DATE TEXT: BEFORE DUODOPA
     Route: 048
  13. QUETIAPINE [Concomitant]
     Active Substance: QUETIAPINE
     Indication: Product used for unknown indication
     Dosage: START DATE TEXT: BEFORE DUODOPA
     Route: 048
  14. RIVOTRIL [Concomitant]
     Active Substance: CLONAZEPAM
     Indication: Product used for unknown indication
     Dosage: BEFORE DUODOPA
     Route: 048
  15. CLOZAPINE [Concomitant]
     Active Substance: CLOZAPINE
     Indication: Product used for unknown indication
     Dosage: ONE TABLET AT 7AM, HALF A TABLET AT 12PM, 4PM, AND 8PM
     Route: 048
     Dates: end: 20251103
  16. RIVASTIGMINE [Suspect]
     Active Substance: RIVASTIGMINE
     Indication: Parkinson^s disease
     Dosage: ONE PATCH A DAY
     Route: 062
     Dates: start: 202509, end: 20251102

REACTIONS (4)
  - Aggression [Recovered/Resolved]
  - Psychotic disorder [Recovered/Resolved]
  - Skin reaction [Recovered/Resolved]
  - Mobility decreased [Recovered/Resolved]

NARRATIVE: CASE EVENT DATE: 20250801
